FAERS Safety Report 13090676 (Version 1)
Quarter: 2017Q1

REPORT INFORMATION
  Report Type: Other
  Country: IT (occurrence: IT)
  Receive Date: 20170105
  Receipt Date: 20170105
  Transmission Date: 20170428
  Serious: Yes (Life-Threatening, Hospitalization, Other)
  Sender: FDA-Public Use
  Company Number: IT-MACLEODS PHARMACEUTICALS US LTD-MAC2016004151

PATIENT

DRUGS (2)
  1. IRBESARTAN. [Suspect]
     Active Substance: IRBESARTAN
     Indication: HYPERTENSION
     Dosage: UNK
     Route: 065
  2. METFORMIN HYDROCHLORIDE. [Suspect]
     Active Substance: METFORMIN HYDROCHLORIDE
     Indication: TYPE 2 DIABETES MELLITUS
     Dosage: 1750 MG, QD
     Route: 048

REACTIONS (10)
  - Anuria [Recovered/Resolved]
  - Acute kidney injury [Recovered/Resolved]
  - Tachypnoea [Recovered/Resolved]
  - Diarrhoea [Recovered/Resolved]
  - Dyspnoea [Recovered/Resolved]
  - Lactic acidosis [Recovered/Resolved]
  - Hypercapnia [Recovered/Resolved]
  - Decreased appetite [Recovered/Resolved]
  - Abdominal pain [Recovered/Resolved]
  - Somnolence [Recovered/Resolved]
